FAERS Safety Report 4384158-9 (Version None)
Quarter: 2004Q2

REPORT INFORMATION
  Report Type: 
  Country: None (occurrence: None)
  Receive Date: 20040621
  Receipt Date: 20040609
  Transmission Date: 20050107
  Serious: Yes (Life-Threatening)
  Sender: FDA-Public Use
  Company Number: 2004219247ES

PATIENT
  Age: 55 Year
  Sex: Male

DRUGS (6)
  1. CAMPTOSAR [Suspect]
     Indication: RECTAL CANCER
     Dosage: 100 MG, CYCLIC, IV
     Route: 042
     Dates: start: 20040402, end: 20040409
  2. ERBITUX() [Suspect]
     Dosage: IV
     Route: 042
     Dates: start: 20040402, end: 20040409
  3. ATROPINE [Concomitant]
  4. POLARAMINE [Concomitant]
  5. SANDOSTATIN [Concomitant]
  6. ONDANSETRON HYDROCHLORIDE [Concomitant]

REACTIONS (4)
  - ANAEMIA [None]
  - DERMATITIS ACNEIFORM [None]
  - MALIGNANT NEOPLASM PROGRESSION [None]
  - RECTAL CANCER [None]
